FAERS Safety Report 7207049-4 (Version None)
Quarter: 2011Q1

REPORT INFORMATION
  Report Type: 
  Country: None (occurrence: None)
  Receive Date: 20110103
  Receipt Date: 20101222
  Transmission Date: 20110831
  Serious: Yes (Other)
  Sender: FDA-Public Use
  Company Number: B0690451A

PATIENT
  Age: 13 Year
  Sex: Male

DRUGS (1)
  1. ACYCLOVIR [Suspect]
     Route: 042

REACTIONS (2)
  - SWELLING [None]
  - EXTRAVASATION [None]
